FAERS Safety Report 13714100 (Version 4)
Quarter: 2017Q3

REPORT INFORMATION
  Report Type: Spontaneous
  Country: US (occurrence: US)
  Receive Date: 20170704
  Receipt Date: 20170928
  Transmission Date: 20171127
  Serious: Yes (Other)
  Sender: FDA-Public Use
  Company Number: PHEH2017US019789

PATIENT
  Sex: Male

DRUGS (3)
  1. AFINITOR [Suspect]
     Active Substance: EVEROLIMUS
     Indication: PRODUCT USED FOR UNKNOWN INDICATION
     Route: 065
  2. LENVIMA [Suspect]
     Active Substance: LENVATINIB
     Indication: RENAL CANCER
     Dosage: 14 MG, QD
     Route: 048
     Dates: start: 20170524
  3. LENVIMA [Suspect]
     Active Substance: LENVATINIB
     Dosage: 10 MG, QD
     Route: 048
     Dates: end: 20170921

REACTIONS (8)
  - Burning sensation [Unknown]
  - Metastases to spine [Unknown]
  - Blood phosphorus decreased [Unknown]
  - Blood magnesium decreased [Unknown]
  - Weight decreased [Unknown]
  - Blood pressure increased [Unknown]
  - Diarrhoea [Unknown]
  - Pain in extremity [Unknown]
